FAERS Safety Report 23375231 (Version 1)
Quarter: 2024Q1

REPORT INFORMATION
  Report Type: Report from Study
  Country: US (occurrence: US)
  Receive Date: 20240106
  Receipt Date: 20240106
  Transmission Date: 20240410
  Serious: Yes (Other)
  Sender: FDA-Public Use
  Company Number: US-UCBSA-2023030882

PATIENT
  Age: 56 Year
  Sex: Female
  Weight: 76 kg

DRUGS (8)
  1. FINTEPLA [Suspect]
     Active Substance: FENFLURAMINE
     Indication: Lennox-Gastaut syndrome
     Dosage: 3.4 MILLIGRAM, 2X/DAY (BID)
     Route: 048
     Dates: start: 20230428
  2. FINTEPLA [Suspect]
     Active Substance: FENFLURAMINE
     Dosage: 3.4 MILLIGRAM, 2X/DAY (BID)
     Route: 048
  3. FINTEPLA [Suspect]
     Active Substance: FENFLURAMINE
     Dosage: 4.6 MILLIGRAM, 2X/DAY (BID)
  4. FINTEPLA [Suspect]
     Active Substance: FENFLURAMINE
     Dosage: 3.4 MILLIGRAM, 2X/DAY (BID)
  5. FINTEPLA [Suspect]
     Active Substance: FENFLURAMINE
     Dosage: 4 MILLILITER, 2X/DAY (BID)
  6. FINTEPLA [Suspect]
     Active Substance: FENFLURAMINE
     Dosage: 3 MILLILITER, 2X/DAY (BID)
  7. BANZEL [Concomitant]
     Active Substance: RUFINAMIDE
     Indication: Seizure
     Dosage: 1400 MILLIGRAM, 2X/DAY (BID)
     Route: 048
  8. ZONEGRAN [Concomitant]
     Active Substance: ZONISAMIDE
     Indication: Seizure
     Dosage: 400 MILLIGRAM,EVENING
     Route: 048

REACTIONS (5)
  - Seizure [Not Recovered/Not Resolved]
  - Vision blurred [Not Recovered/Not Resolved]
  - Sedation [Recovered/Resolved]
  - Agitation [Not Recovered/Not Resolved]
  - Mood altered [Not Recovered/Not Resolved]

NARRATIVE: CASE EVENT DATE: 20230801
